FAERS Safety Report 18341815 (Version 1)
Quarter: 2020Q4

REPORT INFORMATION
  Report Type: Report from Study
  Country: HK (occurrence: HK)
  Receive Date: 20201005
  Receipt Date: 20201005
  Transmission Date: 20210113
  Serious: Yes (Hospitalization, Other)
  Sender: FDA-Public Use
  Company Number: HK-BRISTOL-MYERS SQUIBB COMPANY-BMS-2020-080761

PATIENT
  Age: 80 Year
  Sex: Male

DRUGS (9)
  1. LISINOPRIL. [Concomitant]
     Active Substance: LISINOPRIL
     Indication: BLOOD PRESSURE MANAGEMENT
     Dosage: UNK
     Route: 048
     Dates: start: 20141015
  2. APIXABAN [Suspect]
     Active Substance: APIXABAN
     Indication: CEREBROVASCULAR ACCIDENT PROPHYLAXIS
     Dosage: 5 MILLIGRAM, BID
     Route: 048
     Dates: start: 20140729
  3. LACTULOSE. [Concomitant]
     Active Substance: LACTULOSE
     Indication: CONSTIPATION
     Dosage: UNK
     Route: 048
     Dates: start: 20140807
  4. PREGABALIN. [Concomitant]
     Active Substance: PREGABALIN
     Indication: SEIZURE
     Dosage: UNK
     Route: 048
     Dates: start: 20141013
  5. ESOMEPRAZOLE. [Concomitant]
     Active Substance: ESOMEPRAZOLE MAGNESIUM
     Indication: GASTRITIS EROSIVE
     Dosage: UNK
     Route: 048
     Dates: start: 20140712
  6. INSULIN [Concomitant]
     Active Substance: INSULIN NOS
     Indication: DIABETES MELLITUS
     Dosage: UNK
     Route: 058
     Dates: start: 20140807
  7. SIMVASTATIN. [Concomitant]
     Active Substance: SIMVASTATIN
     Indication: CEREBROVASCULAR ACCIDENT PROPHYLAXIS
     Dosage: UNK
     Route: 048
     Dates: start: 20140530
  8. METFORMIN [Concomitant]
     Active Substance: METFORMIN HYDROCHLORIDE
     Indication: DIABETES MELLITUS
     Dosage: UNK
     Route: 048
     Dates: start: 20140605
  9. THIAMINE. [Concomitant]
     Active Substance: THIAMINE
     Indication: VITAMIN B1 DEFICIENCY
     Dosage: UNK
     Route: 048
     Dates: start: 20140529

REACTIONS (2)
  - Sepsis [Recovered/Resolved]
  - Cerebral atrophy [Unknown]

NARRATIVE: CASE EVENT DATE: 20160101
